FAERS Safety Report 23508812 (Version 1)
Quarter: 2024Q1

REPORT INFORMATION
  Report Type: Spontaneous
  Country: ES (occurrence: ES)
  Receive Date: 20240209
  Receipt Date: 20240209
  Transmission Date: 20240410
  Serious: Yes (Hospitalization)
  Sender: FDA-Public Use
  Company Number: ES-INSUD PHARMA-2401ES00975

PATIENT

DRUGS (4)
  1. NUVESSA [Suspect]
     Active Substance: METRONIDAZOLE
     Indication: Helicobacter infection
     Dosage: 500 MILLIGRAM, Q12H
     Route: 065
  2. AMOXICILLIN [Suspect]
     Active Substance: AMOXICILLIN
     Indication: Helicobacter infection
     Dosage: 1000 MILLIGRAM, Q12H
     Route: 065
  3. CLARITHROMYCIN [Suspect]
     Active Substance: CLARITHROMYCIN
     Indication: Helicobacter infection
     Dosage: 500 MILLIGRAM, Q12H
     Route: 065
  4. OMEPRAZOLE SODIUM [Suspect]
     Active Substance: OMEPRAZOLE SODIUM
     Indication: Helicobacter infection
     Dosage: 20 MILLIGRAM, Q12H
     Route: 065

REACTIONS (5)
  - Substance-induced psychotic disorder [Recovered/Resolved]
  - Behaviour disorder [Recovered/Resolved]
  - Anxiety [Recovered/Resolved]
  - Sleep disorder [Recovered/Resolved]
  - Persecutory delusion [Recovered/Resolved]
